FAERS Safety Report 4733483-8 (Version None)
Quarter: 2005Q3

REPORT INFORMATION
  Report Type: 
  Country: None (occurrence: None)
  Receive Date: 20050801
  Receipt Date: 20050725
  Transmission Date: 20060218
  Serious: Yes (Hospitalization)
  Sender: FDA-Public Use
  Company Number: HQWYE740311MAR04

PATIENT
  Age: 18 Month
  Sex: Male

DRUGS (2)
  1. CHILDREN'S ADVIL [Suspect]
     Indication: PYREXIA
     Dosage: 2.5 ML (50 MG) MAXIMUM SIX DOSES; ORAL
     Route: 048
  2. PARACETAMOL [Concomitant]

REACTIONS (19)
  - ACIDOSIS [None]
  - AZOTAEMIA [None]
  - BIOPSY KIDNEY ABNORMAL [None]
  - BLOOD GLUCOSE INCREASED [None]
  - DEHYDRATION [None]
  - DIALYSIS [None]
  - GLOMERULAR FILTRATION RATE DECREASED [None]
  - HYPERKALAEMIA [None]
  - NEUTROPHILIA [None]
  - RENAL CORTICAL NECROSIS [None]
  - RENAL DISORDER [None]
  - RENAL FAILURE ACUTE [None]
  - RENAL ISCHAEMIA [None]
  - RENAL TUBULAR NECROSIS [None]
  - RESPIRATORY SYNCYTIAL VIRUS INFECTION [None]
  - SOMNOLENCE [None]
  - TACHYPNOEA [None]
  - WHEEZING [None]
  - WHITE BLOOD CELL COUNT INCREASED [None]
